FAERS Safety Report 14747787 (Version 4)
Quarter: 2018Q3

REPORT INFORMATION
  Report Type: Report from Study
  Country: IL (occurrence: IL)
  Receive Date: 20180411
  Receipt Date: 20180801
  Transmission Date: 20181010
  Serious: Yes (Hospitalization, Other)
  Sender: FDA-Public Use
  Company Number: PHHY2018IL001616

PATIENT
  Age: 2 Year
  Sex: Male
  Weight: 12 kg

DRUGS (3)
  1. EXJADE [Suspect]
     Active Substance: DEFERASIROX
     Dosage: 250 MG, QD
     Route: 048
  2. FOLIC ACID. [Concomitant]
     Active Substance: FOLIC ACID
     Indication: PRODUCT USED FOR UNKNOWN INDICATION
     Dosage: 2.5 MG, UNK
     Route: 065
  3. EXJADE [Suspect]
     Active Substance: DEFERASIROX
     Indication: THALASSAEMIA
     Dosage: 500 MG, QD
     Route: 048
     Dates: start: 20170919

REACTIONS (14)
  - Ill-defined disorder [Unknown]
  - Inflammation [Recovered/Resolved]
  - Haematuria [Not Recovered/Not Resolved]
  - Chromaturia [Unknown]
  - Urine output increased [Unknown]
  - Eye infection viral [Recovered/Resolved]
  - Dysuria [Unknown]
  - Nephrolithiasis [Recovering/Resolving]
  - Dehydration [Unknown]
  - Serum ferritin increased [Unknown]
  - Vomiting [Not Recovered/Not Resolved]
  - Diarrhoea [Not Recovered/Not Resolved]
  - Upper respiratory tract infection [Recovering/Resolving]
  - Renal impairment [Unknown]

NARRATIVE: CASE EVENT DATE: 20171231
